FAERS Safety Report 8524709-3 (Version None)
Quarter: 2012Q3

REPORT INFORMATION
  Report Type: 
  Country: None (occurrence: None)
  Receive Date: 20120720
  Receipt Date: 20120710
  Transmission Date: 20120928
  Serious: Yes (Hospitalization)
  Sender: FDA-Public Use
  Company Number: US-ROCHE-1084964

PATIENT
  Sex: Male
  Weight: 120.31 kg

DRUGS (5)
  1. XELODA [Suspect]
     Indication: COLON CANCER
     Route: 048
     Dates: start: 20120606, end: 20120704
  2. LISINOPRIL [Concomitant]
     Indication: BLOOD PRESSURE ABNORMAL
     Dosage: UNKNOWN DOSE
     Route: 048
     Dates: start: 20040101, end: 20120604
  3. XELODA [Suspect]
     Dosage: HS
     Route: 048
     Dates: start: 20120711
  4. SYNTHROID [Concomitant]
     Indication: THYROID DISORDER
     Route: 048
     Dates: start: 19970101
  5. XELODA [Suspect]
     Dosage: AM
     Route: 048
     Dates: start: 20120711

REACTIONS (6)
  - VOCAL CORD POLYPECTOMY [None]
  - DYSGEUSIA [None]
  - ORAL PAIN [None]
  - HYPERAESTHESIA [None]
  - DIARRHOEA [None]
  - INSOMNIA [None]
